FAERS Safety Report 18549094 (Version 1)
Quarter: 2020Q4

REPORT INFORMATION
  Report Type: Spontaneous
  Country: GB (occurrence: GB)
  Receive Date: 20201126
  Receipt Date: 20201126
  Transmission Date: 20210114
  Serious: Yes (Hospitalization)
  Sender: FDA-Public Use
  Company Number: GB-AXELLIA-003512

PATIENT
  Age: 51 Year
  Sex: Male
  Weight: 111 kg

DRUGS (14)
  1. PROPOFOL. [Concomitant]
     Active Substance: PROPOFOL
  2. FENTANYL. [Concomitant]
     Active Substance: FENTANYL
  3. CIPROFLOXACIN. [Concomitant]
     Active Substance: CIPROFLOXACIN
  4. ALLOPURINOL. [Concomitant]
     Active Substance: ALLOPURINOL
  5. METFORMIN [Concomitant]
     Active Substance: METFORMIN HYDROCHLORIDE
  6. PREDNISOLONE. [Concomitant]
     Active Substance: PREDNISOLONE
  7. MONTELUKAST [Concomitant]
     Active Substance: MONTELUKAST SODIUM
  8. VANCOMYCIN [Suspect]
     Active Substance: VANCOMYCIN
     Indication: PNEUMONIA BACTERIAL
     Route: 042
     Dates: start: 20201031, end: 20201103
  9. SALBUTAMOL [Concomitant]
     Active Substance: ALBUTEROL
  10. DEXAMETHASONE. [Concomitant]
     Active Substance: DEXAMETHASONE
  11. AMINOPHYLLINE HYDRATE [Concomitant]
     Active Substance: AMINOPHYLLINE
  12. FUROSEMIDE. [Concomitant]
     Active Substance: FUROSEMIDE
  13. IPRATROPIUM [Concomitant]
     Active Substance: IPRATROPIUM
  14. OMEPRAZOLE. [Concomitant]
     Active Substance: OMEPRAZOLE

REACTIONS (1)
  - Drug eruption [Not Recovered/Not Resolved]

NARRATIVE: CASE EVENT DATE: 20201102
